FAERS Safety Report 7351419-0 (Version None)
Quarter: 2011Q1

REPORT INFORMATION
  Report Type: 
  Country: None (occurrence: None)
  Receive Date: 20110304
  Receipt Date: 20110218
  Transmission Date: 20110831
  Serious: Yes (Death, Hospitalization, Other)
  Sender: FDA-Public Use
  Company Number: 2010MA001892

PATIENT
  Age: 86 Year
  Sex: Male

DRUGS (7)
  1. ACETYLSALICYLIC ACID [Concomitant]
  2. LANSOPRAZOLE [Concomitant]
  3. RAMIPRIL [Concomitant]
  4. FOSAMAX [Concomitant]
  5. TRAMADOL HYDROCHLORIDE [Suspect]
     Indication: BACK PAIN
     Dosage: 4 DF;QD;PO
     Route: 048
     Dates: start: 20090209, end: 20100210
  6. CARBIDOPA AND LEVODOPA [Suspect]
     Indication: PARKINSON'S DISEASE
     Dosage: 62.5 MG;BID;PO
     Route: 048
     Dates: start: 20090101
  7. PREGABALIN [Concomitant]

REACTIONS (19)
  - LIP SWELLING [None]
  - DEEP VEIN THROMBOSIS [None]
  - BLOOD KETONE BODY PRESENT [None]
  - PULMONARY EMBOLISM [None]
  - MICROGRAPHIA [None]
  - CEREBRAL HAEMORRHAGE [None]
  - DELIRIUM [None]
  - MENINGITIS [None]
  - DRUG INTERACTION [None]
  - BLOOD PRESSURE INCREASED [None]
  - PAIN [None]
  - RASH [None]
  - BLOOD POTASSIUM DECREASED [None]
  - MUSCLE RIGIDITY [None]
  - CONFUSIONAL STATE [None]
  - GENERAL PHYSICAL HEALTH DETERIORATION [None]
  - CONDITION AGGRAVATED [None]
  - SUBARACHNOID HAEMORRHAGE [None]
  - SEPSIS [None]
